FAERS Safety Report 12309971 (Version 3)
Quarter: 2016Q3

REPORT INFORMATION
  Report Type: Spontaneous
  Country: US (occurrence: US)
  Receive Date: 20160427
  Receipt Date: 20160706
  Transmission Date: 20161109
  Serious: Yes (Death, Hospitalization, Other)
  Sender: FDA-Public Use
  Company Number: US-PFIZER INC-2016213695

PATIENT
  Age: 44 Year
  Sex: Male
  Weight: 64.76 kg

DRUGS (4)
  1. KEPPRA [Concomitant]
     Active Substance: LEVETIRACETAM
     Dosage: 1000 MG, 2X/DAY
  2. LEXAPRO [Concomitant]
     Active Substance: ESCITALOPRAM OXALATE
     Dosage: 10 MG, 1X/DAY
  3. DEXAMETHASONE. [Concomitant]
     Active Substance: DEXAMETHASONE
     Dosage: 16 MG, 1X/DAY
  4. IBRANCE [Suspect]
     Active Substance: PALBOCICLIB
     Indication: GLIOBLASTOMA MULTIFORME
     Dosage: 125 MG, CYCLIC, 21 DAYS ON, 7 DAYS OFF
     Route: 048
     Dates: start: 20160304, end: 20160505

REACTIONS (5)
  - Glioblastoma multiforme [Unknown]
  - Death [Fatal]
  - Seizure [Recovered/Resolved]
  - Product use issue [Unknown]
  - Disease progression [Unknown]

NARRATIVE: CASE EVENT DATE: 20160304
